FAERS Safety Report 8915924 (Version 2)
Quarter: 2013Q1

REPORT INFORMATION
  Report Type: Spontaneous
  Country: US (occurrence: US)
  Receive Date: 20121119
  Receipt Date: 20130104
  Transmission Date: 20140127
  Serious: Yes (Other)
  Sender: FDA-Public Use
  Company Number: US-PFIZER INC-2012288324

PATIENT
  Age: 55 Year
  Sex: Female
  Weight: 99.77 kg

DRUGS (6)
  1. LYRICA [Suspect]
     Indication: PAIN
     Dosage: 150 MG, 3X/DAY
     Route: 048
  2. LYRICA [Suspect]
     Dosage: 900 MG/DAY
     Route: 048
  3. LYRICA [Suspect]
     Dosage: 150 MG, 3X/DAY
     Route: 048
  4. LYRICA [Suspect]
     Dosage: UNK
     Route: 048
  5. MORPHINE [Concomitant]
     Dosage: 30 MG, UNK
  6. OXYCODONE [Concomitant]
     Dosage: 5 MG, UNK

REACTIONS (5)
  - Incisional hernia [Unknown]
  - Impaired work ability [Unknown]
  - Limb discomfort [Unknown]
  - Incorrect dose administered [Unknown]
  - Large intestine perforation [Unknown]
